FAERS Safety Report 10508048 (Version 1)
Quarter: 2014Q4

REPORT INFORMATION
  Report Type: Spontaneous
  Country: US (occurrence: None)
  Receive Date: 20141008
  Receipt Date: 20141008
  Transmission Date: 20150528
  Serious: Yes (Disabling)
  Sender: FDA-Public Use
  Company Number: None

PATIENT
  Age: 64 Year
  Sex: Female
  Weight: 70.31 kg

DRUGS (1)
  1. DEXILANT [Suspect]
     Active Substance: DEXLANSOPRAZOLE
     Indication: GASTRITIS
     Dosage: 1 CAPSULE
     Route: 048
     Dates: start: 20140910, end: 20141007

REACTIONS (10)
  - Flatulence [None]
  - Depression [None]
  - Diarrhoea [None]
  - Pain in extremity [None]
  - Paraesthesia [None]
  - Insomnia [None]
  - Musculoskeletal stiffness [None]
  - Swelling [None]
  - Hypoaesthesia [None]
  - Weight increased [None]

NARRATIVE: CASE EVENT DATE: 20141007
